FAERS Safety Report 11357378 (Version 1)
Quarter: 2015Q3

REPORT INFORMATION
  Report Type: Spontaneous
  Country: US (occurrence: US)
  Receive Date: 20150803
  Receipt Date: 20150803
  Transmission Date: 20151125
  Serious: No
  Sender: FDA-Public Use
  Company Number: US-ELI_LILLY_AND_COMPANY-US201204008518

PATIENT
  Age: 33 Year
  Sex: Female
  Weight: 48.5 kg

DRUGS (6)
  1. ZYPREXA [Suspect]
     Active Substance: OLANZAPINE
     Indication: BIPOLAR DISORDER
     Dosage: 5 MG, QD
  2. LITHIUM. [Concomitant]
     Active Substance: LITHIUM
  3. OLANZAPINE. [Suspect]
     Active Substance: OLANZAPINE
     Indication: BIPOLAR DISORDER
     Dosage: 10 MG, QOD
  4. VALPROIC ACID. [Concomitant]
     Active Substance: VALPROIC ACID
  5. CELEXA [Concomitant]
     Active Substance: CITALOPRAM HYDROBROMIDE
  6. ZYPREXA [Suspect]
     Active Substance: OLANZAPINE
     Dosage: 20 MG, QD

REACTIONS (6)
  - Gait disturbance [Unknown]
  - Weight increased [Recovered/Resolved]
  - Wrong technique in product usage process [Not Recovered/Not Resolved]
  - General physical condition [Unknown]
  - Emotional disorder [Unknown]
  - Crying [Unknown]
